FAERS Safety Report 8201862-2 (Version None)
Quarter: 2012Q1

REPORT INFORMATION
  Report Type: 
  Country: None (occurrence: None)
  Receive Date: 20120312
  Receipt Date: 20120306
  Transmission Date: 20120608
  Serious: Yes (Other)
  Sender: FDA-Public Use
  Company Number: JP-BAYER-2012-013296

PATIENT
  Age: 81 Year
  Sex: Male
  Weight: 72 kg

DRUGS (4)
  1. DEPAS [Concomitant]
     Indication: INSOMNIA
     Dosage: DAILY DOSE 1 MG
     Route: 048
  2. YOKUKAN-SAN [Concomitant]
     Indication: INSOMNIA
     Dosage: DAILY DOSE 2.5 G
     Route: 048
  3. ARICEPT [Concomitant]
     Indication: DEMENTIA
     Dosage: DAILY DOSE 5 MG
     Route: 048
  4. NEXAVAR [Suspect]
     Indication: RENAL CELL CARCINOMA
     Dosage: 400 MG, BID
     Route: 048
     Dates: start: 20120123, end: 20120128

REACTIONS (3)
  - MYOPATHY [None]
  - MYALGIA [None]
  - RHABDOMYOLYSIS [None]
